FAERS Safety Report 8266384-1 (Version None)
Quarter: 2012Q2

REPORT INFORMATION
  Report Type: 
  Country: None (occurrence: None)
  Receive Date: 20120406
  Receipt Date: 20120403
  Transmission Date: 20120825
  Serious: Yes (Hospitalization)
  Sender: FDA-Public Use
  Company Number: CN-ALLERGAN-1203096US

PATIENT
  Age: 25 Year
  Sex: Female

DRUGS (1)
  1. BOTULINUM TOXIN TYPE A [Suspect]
     Indication: MUSCLE HYPERTROPHY
     Dosage: 80 UNITS, SINGLE
     Dates: start: 20120225, end: 20120225

REACTIONS (10)
  - VOMITING [None]
  - BACK DISORDER [None]
  - MUSCLE DISORDER [None]
  - DYSPNOEA [None]
  - CHEST DISCOMFORT [None]
  - HYPOAESTHESIA [None]
  - MUSCULAR WEAKNESS [None]
  - HEADACHE [None]
  - FEELING ABNORMAL [None]
  - PYREXIA [None]
